FAERS Safety Report 12843584 (Version 2)
Quarter: 2016Q4

REPORT INFORMATION
  Report Type: Spontaneous
  Country: BR (occurrence: BR)
  Receive Date: 20161013
  Receipt Date: 20161128
  Transmission Date: 20170207
  Serious: Yes (Hospitalization, Other)
  Sender: FDA-Public Use
  Company Number: BR-PFIZER INC-2016455563

PATIENT
  Age: 41 Year
  Sex: Male

DRUGS (5)
  1. FRONTAL XR [Suspect]
     Active Substance: ALPRAZOLAM
     Indication: IRRITABILITY
  2. ENALAPRIL [Concomitant]
     Active Substance: ENALAPRIL
     Dosage: UNK
  3. FRONTAL XR [Suspect]
     Active Substance: ALPRAZOLAM
     Indication: PANIC DISORDER
     Dosage: 1 TABLET OF 1MG AT NIGHT
     Dates: start: 2006
  4. AAS [Concomitant]
     Active Substance: ASPIRIN
     Dosage: UNK
  5. CITALOPRAM [Concomitant]
     Active Substance: CITALOPRAM HYDROBROMIDE
     Dosage: UNK

REACTIONS (3)
  - Infarction [Recovered/Resolved]
  - Angina pectoris [Unknown]
  - Drug dependence [Not Recovered/Not Resolved]

NARRATIVE: CASE EVENT DATE: 2006
